FAERS Safety Report 24716709 (Version 1)
Quarter: 2024Q4

REPORT INFORMATION
  Report Type: Spontaneous
  Country: US (occurrence: None)
  Receive Date: 20241210
  Receipt Date: 20241210
  Transmission Date: 20250114
  Serious: Yes (Hospitalization)
  Sender: Public
  Company Number: None

PATIENT
  Age: 79 Year
  Sex: Female
  Weight: 53.5 kg

DRUGS (3)
  1. DARATUMUMAB [Suspect]
     Active Substance: DARATUMUMAB
     Dates: end: 20230531
  2. DEXAMETHASONE [Suspect]
     Active Substance: DEXAMETHASONE
     Dates: end: 20230614
  3. LENALIDOMIDE [Suspect]
     Active Substance: LENALIDOMIDE
     Dates: end: 20230620

REACTIONS (13)
  - Dyspnoea [None]
  - Respiratory tract congestion [None]
  - Therapy interrupted [None]
  - Pyrexia [None]
  - Oropharyngeal pain [None]
  - Back pain [None]
  - Oxygen saturation decreased [None]
  - Acute respiratory failure [None]
  - Pneumonia [None]
  - Parainfluenzae virus infection [None]
  - Sepsis [None]
  - Leukopenia [None]
  - Adrenal insufficiency [None]

NARRATIVE: CASE EVENT DATE: 20230623
